FAERS Safety Report 7436442-X (Version None)
Quarter: 2011Q2

REPORT INFORMATION
  Report Type: 
  Country: None (occurrence: None)
  Receive Date: 20110426
  Receipt Date: 20110414
  Transmission Date: 20111010
  Serious: No
  Sender: FDA-Public Use
  Company Number: US-BIOGENIDEC-2011BI014574

PATIENT
  Sex: Female

DRUGS (3)
  1. TYSABRI [Suspect]
     Indication: MULTIPLE SCLEROSIS
     Route: 042
     Dates: start: 20100909, end: 20110222
  2. TYSABRI [Suspect]
     Route: 042
     Dates: start: 20061117, end: 20080701
  3. TYSABRI [Suspect]
     Route: 042
     Dates: start: 20050114

REACTIONS (2)
  - PAIN [None]
  - NASOPHARYNGITIS [None]
